FAERS Safety Report 10961743 (Version 1)
Quarter: 2015Q1

REPORT INFORMATION
  Report Type: Spontaneous
  Country: ES (occurrence: ES)
  Receive Date: 20150327
  Receipt Date: 20150327
  Transmission Date: 20150721
  Serious: Yes (Other)
  Sender: FDA-Public Use
  Company Number: ES-AMGEN-ESPSP2015026830

PATIENT
  Age: 83 Year
  Sex: Female

DRUGS (11)
  1. ATENOLOL. [Concomitant]
     Active Substance: ATENOLOL
     Indication: HYPERTENSION
     Dosage: 75 MG/DIA
     Route: 048
  2. MIMPARA [Suspect]
     Active Substance: CINACALCET HYDROCHLORIDE
     Indication: HYPERPARATHYROIDISM
     Dosage: 30 MG/48H, 28 TABLETS
     Route: 048
     Dates: start: 20150205
  3. LERCANIDIPINO [Concomitant]
     Indication: HYPERTENSION
     Dosage: 10MG/12H
     Route: 048
  4. ENALAPRIL [Concomitant]
     Active Substance: ENALAPRIL
     Dosage: 10 MG/24H
     Route: 048
  5. TOVIAZ [Concomitant]
     Active Substance: FESOTERODINE FUMARATE
     Dosage: 2MG/24H
     Route: 048
  6. ZEMPLAR [Concomitant]
     Active Substance: PARICALCITOL
     Dosage: 1 MCG
     Route: 048
  7. HIDROFEROL [Concomitant]
     Active Substance: CALCIFEDIOL
     Dosage: .266 MG ORAL SOLUTION  1.5 ML
     Route: 048
  8. ADIRO [Concomitant]
     Active Substance: ASPIRIN
     Indication: MYOCARDIAL ISCHAEMIA
     Dosage: 300MG/24H
     Route: 048
  9. OMEPRAZOL [Concomitant]
     Active Substance: OMEPRAZOLE
     Dosage: 20 MG/24H
     Route: 048
  10. INEGY [Concomitant]
     Active Substance: EZETIMIBE\SIMVASTATIN
     Dosage: 10 MG/20 MG
     Route: 048
  11. FUROSEMIDA [Concomitant]
     Active Substance: FUROSEMIDE
     Dosage: 20 MG/24H
     Route: 048
     Dates: start: 20150205

REACTIONS (3)
  - Oedema [Recovering/Resolving]
  - Dyspnoea [Recovering/Resolving]
  - Oliguria [Recovering/Resolving]

NARRATIVE: CASE EVENT DATE: 20150212
